FAERS Safety Report 7779327-1 (Version None)
Quarter: 2011Q3

REPORT INFORMATION
  Report Type: 
  Country: None (occurrence: None)
  Receive Date: 20110926
  Receipt Date: 20110915
  Transmission Date: 20111222
  Serious: Yes (Hospitalization)
  Sender: FDA-Public Use
  Company Number: US-ASTRAZENECA-2011SE25103

PATIENT
  Age: 22919 Day
  Sex: Female

DRUGS (2)
  1. NEXIUM [Suspect]
     Route: 048
  2. SEROQUEL [Suspect]
     Indication: BIPOLAR DISORDER
     Route: 048

REACTIONS (7)
  - OESOPHAGEAL DISORDER [None]
  - MUSCLE RUPTURE [None]
  - ACCIDENT [None]
  - GASTROINTESTINAL EROSION [None]
  - ACCIDENT AT HOME [None]
  - MUSCLE SPASMS [None]
  - LIGAMENT SPRAIN [None]
